FAERS Safety Report 7648386-9 (Version None)
Quarter: 2011Q3

REPORT INFORMATION
  Report Type: 
  Country: None (occurrence: None)
  Receive Date: 20110801
  Receipt Date: 20110722
  Transmission Date: 20111222
  Serious: Yes (Other)
  Sender: FDA-Public Use
  Company Number: GB-ASTRAZENECA-2011SE43855

PATIENT
  Age: 48 Year
  Sex: Female

DRUGS (5)
  1. ASPIRIN [Concomitant]
     Route: 048
  2. CITALOPRAM HYDROBROMIDE [Concomitant]
     Route: 048
  3. SIMVASTATIN [Concomitant]
     Route: 048
  4. LANSOPRAZOLE [Concomitant]
     Route: 048
  5. MEROPENEM [Suspect]
     Route: 042
     Dates: start: 20110614, end: 20110623

REACTIONS (2)
  - PARAESTHESIA ORAL [None]
  - DYSGEUSIA [None]
